FAERS Safety Report 10752994 (Version 1)
Quarter: 2015Q1

REPORT INFORMATION
  Report Type: Report from Study
  Country: US (occurrence: US)
  Receive Date: 20150130
  Receipt Date: 20150130
  Transmission Date: 20150721
  Serious: Yes (Other)
  Sender: FDA-Public Use
  Company Number: US-ABBVIE-15P-163-1337710-00

PATIENT
  Age: 36 Year
  Sex: Female
  Weight: 61.29 kg

DRUGS (6)
  1. LUPRON DEPOT [Suspect]
     Active Substance: LEUPROLIDE ACETATE
     Route: 030
     Dates: start: 2002
  2. ZOFRAN [Concomitant]
     Active Substance: ONDANSETRON HYDROCHLORIDE
     Indication: PRODUCT USED FOR UNKNOWN INDICATION
  3. PREMARIN [Concomitant]
     Active Substance: ESTROGENS, CONJUGATED
     Indication: PRODUCT USED FOR UNKNOWN INDICATION
  4. TROKENDI XR [Concomitant]
     Active Substance: TOPIRAMATE
     Indication: PRODUCT USED FOR UNKNOWN INDICATION
  5. LIDOCAINE. [Concomitant]
     Active Substance: LIDOCAINE
     Indication: PRODUCT USED FOR UNKNOWN INDICATION
  6. LUPRON DEPOT [Suspect]
     Active Substance: LEUPROLIDE ACETATE
     Indication: ENDOMETRIOSIS
     Route: 030
     Dates: start: 2000, end: 2001

REACTIONS (13)
  - Ovarian cyst ruptured [Recovered/Resolved]
  - Myalgia [Not Recovered/Not Resolved]
  - Therapy cessation [Unknown]
  - Vaginal haemorrhage [Recovered/Resolved]
  - Uterine haemorrhage [Recovered/Resolved]
  - Back pain [Not Recovered/Not Resolved]
  - Adnexa uteri pain [Not Recovered/Not Resolved]
  - Migraine [Not Recovered/Not Resolved]
  - Drug dose omission [Recovering/Resolving]
  - Hot flush [Not Recovered/Not Resolved]
  - Uterine leiomyoma [Recovered/Resolved]
  - Fibromyalgia [Not Recovered/Not Resolved]
  - Pelvic pain [Not Recovered/Not Resolved]

NARRATIVE: CASE EVENT DATE: 2001
